FAERS Safety Report 6773620-7 (Version None)
Quarter: 2010Q2

REPORT INFORMATION
  Report Type: 
  Country: None (occurrence: None)
  Receive Date: 20100616
  Receipt Date: 20100608
  Transmission Date: 20101027
  Serious: Yes (Hospitalization, Other)
  Sender: FDA-Public Use
  Company Number: US-AMGEN-QUU409271

PATIENT
  Sex: Male

DRUGS (12)
  1. ENBREL [Suspect]
     Indication: PSORIASIS
     Route: 058
     Dates: start: 20090610, end: 20091013
  2. ASPIRIN [Concomitant]
     Route: 048
  3. TRIAMCINOLONE ACETONIDE [Concomitant]
     Route: 061
  4. SIMVASTATIN [Concomitant]
     Route: 048
  5. NOVOLIN N [Concomitant]
     Route: 058
  6. NOVOLIN R [Concomitant]
     Route: 058
  7. METFORMIN [Concomitant]
     Route: 048
  8. ACETAMINOPHEN AND HYDROCODONE BITARTRATE [Concomitant]
     Route: 048
  9. AMLODIPINE [Concomitant]
     Route: 048
  10. HYDROCHLOROTHIAZIDE [Concomitant]
     Route: 048
  11. CLOBETASOL PROPIONATE [Concomitant]
     Route: 061
  12. COZAAR [Concomitant]
     Route: 048

REACTIONS (6)
  - HAEMOPTYSIS [None]
  - HEART RATE DECREASED [None]
  - PNEUMONIA [None]
  - PSORIASIS [None]
  - RHABDOMYOLYSIS [None]
  - SEPSIS [None]
